FAERS Safety Report 13962281 (Version 1)
Quarter: 2017Q3

REPORT INFORMATION
  Report Type: Spontaneous
  Country: US (occurrence: US)
  Receive Date: 20170912
  Receipt Date: 20170912
  Transmission Date: 20171128
  Serious: Yes (Other)
  Sender: FDA-Public Use
  Company Number: US-ASTRAZENECA-2010BM11268

PATIENT
  Age: 63 Year
  Sex: Male
  Weight: 75.8 kg

DRUGS (7)
  1. MOVANTIK [Suspect]
     Active Substance: NALOXEGOL OXALATE
     Indication: CONSTIPATION
     Route: 048
     Dates: start: 201512
  2. GLUCOPHAGE [Concomitant]
     Active Substance: METFORMIN HYDROCHLORIDE
     Indication: TYPE 2 DIABETES MELLITUS
  3. CIALIS [Concomitant]
     Active Substance: TADALAFIL
     Indication: ERECTILE DYSFUNCTION
  4. BYETTA [Suspect]
     Active Substance: EXENATIDE
     Indication: TYPE 2 DIABETES MELLITUS
     Route: 058
  5. PHILIPS MILK OF MAGNESIA [Concomitant]
  6. BYETTA [Suspect]
     Active Substance: EXENATIDE
     Indication: TYPE 2 DIABETES MELLITUS
     Route: 058
     Dates: start: 201003
  7. DILAUDID [Concomitant]
     Active Substance: HYDROMORPHONE HYDROCHLORIDE
     Indication: SPINAL PAIN

REACTIONS (5)
  - Drug effect incomplete [Not Recovered/Not Resolved]
  - Spinal cord compression [Unknown]
  - Erectile dysfunction [Recovering/Resolving]
  - Head and neck cancer [Not Recovered/Not Resolved]
  - Cancer pain [Unknown]

NARRATIVE: CASE EVENT DATE: 2013
